FAERS Safety Report 4630647-9 (Version None)
Quarter: 2005Q2

REPORT INFORMATION
  Report Type: 
  Country: None (occurrence: None)
  Receive Date: 20050406
  Receipt Date: 20050330
  Transmission Date: 20051028
  Serious: Yes (Death)
  Sender: FDA-Public Use
  Company Number: B0376170A

PATIENT
  Sex: 0

DRUGS (8)
  1. ALKERAN [Suspect]
     Dosage: 140MG/M2 PER DAY INTRAVENOUS
     Route: 042
  2. CAMPATH [Suspect]
     Dosage: INTRAVENOUS
     Route: 042
  3. FLUDARABINE PHOSPHATE [Suspect]
     Dosage: 30MG/M2 PER DAY INTRAVENOUS
     Route: 042
  4. CYCLOSPORINE [Concomitant]
  5. METHYLPREDNISOLONE [Concomitant]
  6. GRANULOCYTE COL.STIM.FACT [Concomitant]
  7. COTRIM [Concomitant]
  8. ITRACONAZOLE [Concomitant]

REACTIONS (5)
  - CYTOMEGALOVIRUS GASTROINTESTINAL INFECTION [None]
  - CYTOMEGALOVIRUS INFECTION [None]
  - DRUG RESISTANCE [None]
  - LUNG DISORDER [None]
  - THROMBOTIC THROMBOCYTOPENIC PURPURA [None]
